FAERS Safety Report 24365505 (Version 1)
Quarter: 2024Q3

REPORT INFORMATION
  Report Type: Spontaneous
  Country: US (occurrence: None)
  Receive Date: 20240926
  Receipt Date: 20240926
  Transmission Date: 20241017
  Serious: No
  Sender: BANNER
  Company Number: US-PTA-005711

PATIENT
  Age: 50 Year
  Sex: Female

DRUGS (1)
  1. ALEVE [Suspect]
     Active Substance: NAPROXEN SODIUM
     Route: 048

REACTIONS (2)
  - Blood glucose increased [Recovered/Resolved with Sequelae]
  - Extra dose administered [Unknown]
